FAERS Safety Report 5612225-8 (Version None)
Quarter: 2008Q1

REPORT INFORMATION
  Report Type: 
  Country: None (occurrence: None)
  Receive Date: 20080204
  Receipt Date: 20080125
  Transmission Date: 20080703
  Serious: Yes (Death)
  Sender: FDA-Public Use
  Company Number: US-ROCHE-538552

PATIENT
  Age: 53 Year
  Sex: Male
  Weight: 105 kg

DRUGS (13)
  1. PEGASYS [Suspect]
     Indication: HEPATITIS C
     Dosage: DOSING REGIMEN REPORTED AS EVERY WEEK.
     Route: 058
     Dates: start: 20071109, end: 20071207
  2. COPEGUS [Suspect]
     Indication: HEPATITIS C
     Route: 048
     Dates: start: 20071109, end: 20071207
  3. TELMISARTAN [Concomitant]
  4. VERAPAMIL [Concomitant]
  5. SPIRONOLACTONE [Concomitant]
  6. POTASSIUM CHLORIDE [Concomitant]
  7. LASIX [Concomitant]
  8. GABAPENTIN [Concomitant]
  9. PAXIL [Concomitant]
  10. LORAZEPAM [Concomitant]
  11. AZMACORT [Concomitant]
  12. ALBUTEROL [Concomitant]
     Dosage: REPORTED AS EVERY SIX HOURS.
  13. HYDROCODONE BITARTRATE [Concomitant]

REACTIONS (11)
  - ANXIETY [None]
  - CHRONIC HEPATIC FAILURE [None]
  - DEHYDRATION [None]
  - DEPRESSION [None]
  - DRY SKIN [None]
  - FATIGUE [None]
  - HAEMOGLOBIN DECREASED [None]
  - HEPATIC CIRRHOSIS [None]
  - HEPATITIS C [None]
  - NAUSEA [None]
  - VITREOUS FLOATERS [None]
